FAERS Safety Report 5289878-X (Version None)
Quarter: 2007Q2

REPORT INFORMATION
  Report Type: 
  Country: None (occurrence: None)
  Receive Date: 20070406
  Receipt Date: 20070326
  Transmission Date: 20071010
  Serious: Yes (Hospitalization, Other)
  Sender: FDA-Public Use
  Company Number: US-PFIZER INC-2006142257

PATIENT
  Sex: Male
  Weight: 74.4 kg

DRUGS (9)
  1. CELEBREX [Suspect]
     Indication: BACK PAIN
  2. SIMVASTATIN [Concomitant]
  3. VERAPAMIL [Concomitant]
  4. BECONASE [Concomitant]
  5. COMBIVENT [Concomitant]
  6. ALBUTEROL [Concomitant]
  7. XANAX [Concomitant]
     Dates: start: 19990131
  8. QUININE [Concomitant]
  9. MOTRIN [Concomitant]

REACTIONS (4)
  - ACUTE MYOCARDIAL INFARCTION [None]
  - CARDIOVASCULAR DISORDER [None]
  - MEMORY IMPAIRMENT [None]
  - NERVOUSNESS [None]
